FAERS Safety Report 7334979-5 (Version None)
Quarter: 2011Q1

REPORT INFORMATION
  Report Type: 
  Country: None (occurrence: None)
  Receive Date: 20110307
  Receipt Date: 20110222
  Transmission Date: 20110831
  Serious: Yes (Death)
  Sender: FDA-Public Use
  Company Number: US-ELI_LILLY_AND_COMPANY-US201102006466

PATIENT
  Age: 30 Year
  Sex: Female

DRUGS (6)
  1. HYDROCODONE [Concomitant]
  2. GABAPENTIN [Concomitant]
  3. AMITRIPTYLINE HCL [Concomitant]
  4. DULOXETINE HYDROCHLORIDE [Suspect]
  5. METHADONE [Concomitant]
  6. OXYCODONE [Concomitant]

REACTIONS (1)
  - DEATH [None]
